FAERS Safety Report 7338688-8 (Version None)
Quarter: 2011Q1

REPORT INFORMATION
  Report Type: 
  Country: None (occurrence: None)
  Receive Date: 20110308
  Receipt Date: 20110228
  Transmission Date: 20110831
  Serious: Yes (Hospitalization)
  Sender: FDA-Public Use
  Company Number: A0898915A

PATIENT
  Age: 57 Year
  Sex: Female

DRUGS (2)
  1. TYKERB [Suspect]
     Dosage: 1250MG PER DAY
     Route: 065
     Dates: start: 20101116, end: 20101202
  2. XELODA [Concomitant]

REACTIONS (11)
  - DYSPNOEA [None]
  - COUGH [None]
  - SKIN DISCOLOURATION [None]
  - SKIN EXFOLIATION [None]
  - GAIT DISTURBANCE [None]
  - PNEUMONIA [None]
  - FATIGUE [None]
  - TACHYCARDIA [None]
  - SKIN CHAPPED [None]
  - MUSCULAR WEAKNESS [None]
  - PARAESTHESIA [None]
